FAERS Safety Report 8363634-8 (Version None)
Quarter: 2012Q2

REPORT INFORMATION
  Report Type: 
  Country: None (occurrence: None)
  Receive Date: 20120516
  Receipt Date: 20120509
  Transmission Date: 20120825
  Serious: Yes (Hospitalization)
  Sender: FDA-Public Use
  Company Number: JP-NOVOPROD-350435

PATIENT
  Age: 60 Year
  Sex: Male
  Weight: 48 kg

DRUGS (6)
  1. NICHIASPIRIN [Concomitant]
     Indication: CEREBRAL INFARCTION
     Dosage: 100 MG, QD
     Route: 048
  2. RETICOLAN [Concomitant]
     Indication: DIABETIC NEUROPATHY
     Dosage: 1.5 MG, QD
     Route: 048
  3. CORINAEL [Concomitant]
     Indication: HYPERTENSION
     Dosage: 20 MG, QD
     Route: 048
  4. NOVOLIN R [Suspect]
     Indication: DIABETES MELLITUS
     Dosage: 32 U, QD
     Route: 058
     Dates: start: 20010101, end: 20111025
  5. AMLODIPINE BESYLATE [Concomitant]
     Indication: HYPERTENSION
     Dosage: 5 MG, QD
     Route: 048
  6. METFORMIN HCL [Concomitant]
     Indication: TYPE 2 DIABETES MELLITUS
     Dosage: 500 MG, QD
     Route: 048
     Dates: end: 20111001

REACTIONS (2)
  - DIABETES MELLITUS INADEQUATE CONTROL [None]
  - ANTI-INSULIN ANTIBODY POSITIVE [None]
